FAERS Safety Report 6832383 (Version 1)
Quarter: 2020Q3

REPORT INFORMATION
  Report Type: Spontaneous
  Country: DE (occurrence: DE)
  Receive Date: 20081204
  Receipt Date: 20081204
  Transmission Date: 20201104
  Serious: Yes (Other)
  Sender: FDA-Public Use
  Company Number: PHHY2008DE29828

PATIENT
  Age: 65 Year
  Sex: Female

DRUGS (3)
  1. PAMIDRONIC ACID [Suspect]
     Active Substance: PAMIDRONIC ACID
     Indication: PLASMACYTOMA
     Dosage: 90 MG EVERY 4 WEEKS
     Route: 042
     Dates: start: 20060717, end: 20060912
  2. ZOMETA [Suspect]
     Active Substance: ZOLEDRONIC ACID
     Indication: PLASMACYTOMA
     Dosage: 4 MG EVERY 4 WEEKS
     Route: 042
     Dates: start: 20020212, end: 20060623
  3. IBANDRONIC ACID. [Suspect]
     Active Substance: IBANDRONIC ACID
     Indication: PLASMACYTOMA
     Dosage: 6 MG EVERY 4 WEEKS
     Route: 042
     Dates: start: 20061016, end: 20081020

REACTIONS (1)
  - Osteonecrosis [Unknown]

NARRATIVE: CASE EVENT DATE: 20070701
